FAERS Safety Report 4707975-1 (Version None)
Quarter: 2005Q2

REPORT INFORMATION
  Report Type: 
  Country: None (occurrence: None)
  Receive Date: 20050629
  Receipt Date: 20050322
  Transmission Date: 20051028
  Serious: No
  Sender: FDA-Public Use
  Company Number: 05P-163-0294824-00

PATIENT
  Sex: Female

DRUGS (5)
  1. HUMIRA [Suspect]
     Indication: RHEUMATOID ARTHRITIS
     Dosage: 40 MG, SUBCUTANEOUS
     Route: 058
     Dates: start: 20040301, end: 20050301
  2. PREDNISONE TAB [Concomitant]
  3. SYNTHROID [Concomitant]
  4. VITAMIN C FILMTAB (ASCORBIC ACID) [Concomitant]
  5. CALCIUM(AMINOSYN II W/ELECTROLYTES, DEXTROSE + CALCIUM INJECTION)(AMIN [Concomitant]

REACTIONS (1)
  - DIFFICULTY IN WALKING [None]
